FAERS Safety Report 7803389-6 (Version None)
Quarter: 2011Q4

REPORT INFORMATION
  Report Type: 
  Country: None (occurrence: None)
  Receive Date: 20111007
  Receipt Date: 20110930
  Transmission Date: 20120403
  Serious: Yes (Congenital Anomaly, Other)
  Sender: FDA-Public Use
  Company Number: DE-ASTRAZENECA-2011SE58946

PATIENT
  Age: 0 Year
  Sex: Male
  Weight: 4.2 kg

DRUGS (4)
  1. SEROQUEL [Suspect]
     Indication: DEPRESSION
     Route: 064
  2. SEROQUEL [Suspect]
     Route: 064
  3. DIAZEPAM [Concomitant]
     Indication: DEPRESSION
     Route: 064
     Dates: start: 20110121, end: 20110301
  4. LEVOTHYROXINE SODIUM [Concomitant]
     Indication: HYPOTHYROIDISM
     Route: 064

REACTIONS (3)
  - PATENT DUCTUS ARTERIOSUS [None]
  - ATRIAL SEPTAL DEFECT [None]
  - VENTRICULAR EXTRASYSTOLES [None]
